FAERS Safety Report 5929853-2 (Version None)
Quarter: 2008Q4

REPORT INFORMATION
  Report Type: 
  Country: None (occurrence: None)
  Receive Date: 20081024
  Receipt Date: 20081007
  Transmission Date: 20090506
  Serious: Yes (Death)
  Sender: FDA-Public Use
  Company Number: JP-ROCHE-592618

PATIENT
  Age: 90 Year
  Sex: Male

DRUGS (1)
  1. ROCEPHIN [Suspect]
     Indication: HYPERTHERMIA
     Route: 041

REACTIONS (1)
  - CARDIAC FAILURE ACUTE [None]
